FAERS Safety Report 5253420-X (Version None)
Quarter: 2007Q1

REPORT INFORMATION
  Report Type: 
  Country: None (occurrence: None)
  Receive Date: 20070301
  Receipt Date: 20070216
  Transmission Date: 20070707
  Serious: Yes (Death)
  Sender: FDA-Public Use
  Company Number: ZA-ELI_LILLY_AND_COMPANY-ZA200702001105

PATIENT
  Age: 57 Year
  Sex: Male
  Weight: 38 kg

DRUGS (8)
  1. CAPASTAT SULFATE [Suspect]
     Indication: TUBERCULOSIS
     Dosage: 750 MG, 5/W
     Route: 030
     Dates: start: 20061214
  2. PYRAZINAMIDE [Concomitant]
  3. ETHAMBUTOL HYDROCHLORIDE [Concomitant]
  4. ETHIONAMIDE [Concomitant]
  5. OFLOXACIN [Concomitant]
  6. TERIZIDONE [Concomitant]
  7. PARA-AMINOSALICYLATE ACID POWDER [Concomitant]
     Dates: end: 20070112
  8. KANAMYCIN [Concomitant]

REACTIONS (4)
  - DIARRHOEA [None]
  - GENERAL PHYSICAL HEALTH DETERIORATION [None]
  - HYPOKALAEMIA [None]
  - VOMITING [None]
